FAERS Safety Report 7911130-1 (Version None)
Quarter: 2011Q4

REPORT INFORMATION
  Report Type: 
  Country: None (occurrence: None)
  Receive Date: 20111114
  Receipt Date: 20111108
  Transmission Date: 20120403
  Serious: Yes (Life-Threatening, Hospitalization, Other)
  Sender: FDA-Public Use
  Company Number: CA-CELGENEUS-028-20785-09111714

PATIENT
  Sex: Female
  Weight: 71 kg

DRUGS (12)
  1. PAMIDRONATE DISODIUM [Concomitant]
     Dosage: 90 MILLIGRAM
     Route: 041
     Dates: start: 20071212
  2. DILANTIN [Concomitant]
     Route: 065
     Dates: start: 20090901
  3. HYDROMORPHONE HCL [Concomitant]
     Dosage: 9 MILLIGRAM
     Route: 048
  4. HYDROMORPHONE HCL [Concomitant]
     Dosage: 1MG-2MG
     Route: 048
  5. VALTRATE [Concomitant]
     Indication: HERPES ZOSTER DISSEMINATED
     Dosage: 1 GRAM
     Route: 065
     Dates: start: 20090901
  6. LYRICA [Concomitant]
     Dosage: 150 MILLIGRAM
     Route: 048
  7. THALOMID [Suspect]
     Indication: MULTIPLE MYELOMA
     Dosage: 200 MILLIGRAM
     Route: 048
     Dates: start: 20081201, end: 20090901
  8. ACYCLOVIR [Concomitant]
     Indication: HERPES ZOSTER DISSEMINATED
     Route: 041
     Dates: start: 20090901
  9. AZITHROMYCIN [Concomitant]
     Route: 065
  10. MEROPENEM [Concomitant]
     Route: 065
  11. DOCUSATE SODIUM [Concomitant]
     Dosage: 100 MILLIGRAM
     Route: 048
  12. CEFOTAXIME [Concomitant]
     Route: 065

REACTIONS (3)
  - HERPES ZOSTER DISSEMINATED [None]
  - POSTERIOR REVERSIBLE ENCEPHALOPATHY SYNDROME [None]
  - DRUG HYPERSENSITIVITY [None]
